FAERS Safety Report 7896838-9 (Version None)
Quarter: 2011Q4

REPORT INFORMATION
  Report Type: 
  Country: None (occurrence: None)
  Receive Date: 20111107
  Receipt Date: 20111027
  Transmission Date: 20120403
  Serious: No
  Sender: FDA-Public Use
  Company Number: US-BIOGENIDEC-2011BI041051

PATIENT
  Age: 41 Year
  Sex: Male

DRUGS (5)
  1. SEROQUEL [Concomitant]
     Indication: BIPOLAR DISORDER
  2. DEPAKOTE [Concomitant]
     Indication: BIPOLAR DISORDER
  3. AVONEX [Suspect]
     Indication: MULTIPLE SCLEROSIS
     Route: 030
     Dates: start: 20110801
  4. TEGRETOL [Concomitant]
     Indication: BIPOLAR DISORDER
  5. KLONOPIN [Concomitant]
     Indication: BIPOLAR DISORDER

REACTIONS (5)
  - FATIGUE [None]
  - ARTHRALGIA [None]
  - DIARRHOEA [None]
  - MUSCULAR WEAKNESS [None]
  - DIZZINESS [None]
